FAERS Safety Report 7722174-7 (Version None)
Quarter: 2011Q3

REPORT INFORMATION
  Report Type: 
  Country: None (occurrence: None)
  Receive Date: 20110831
  Receipt Date: 20110818
  Transmission Date: 20111222
  Serious: Yes (Hospitalization, Other)
  Sender: FDA-Public Use
  Company Number: US-CELGENEUS-163-21880-11072137

PATIENT
  Sex: Male

DRUGS (7)
  1. REVLIMID [Suspect]
     Dosage: 10 MILLIGRAM
     Route: 048
     Dates: start: 20110301
  2. VELCADE [Concomitant]
     Indication: MULTIPLE MYELOMA
     Route: 041
     Dates: start: 20100501, end: 20100901
  3. REVLIMID [Suspect]
     Indication: MULTIPLE MYELOMA
     Dosage: 15 MILLIGRAM
     Route: 048
     Dates: start: 20100621
  4. REVLIMID [Suspect]
     Dosage: 25-5MG
     Route: 048
     Dates: start: 20100801, end: 20110101
  5. NARCOTICS (PAIN MEDICATIONS) [Suspect]
     Route: 065
  6. CELEXA [Suspect]
     Indication: DEPRESSION
     Route: 048
     Dates: start: 20101101, end: 20110401
  7. DECADRON [Concomitant]
     Indication: MULTIPLE MYELOMA
     Route: 041
     Dates: start: 20100501, end: 20100901

REACTIONS (3)
  - NIGHTMARE [None]
  - DECREASED APPETITE [None]
  - MENTAL STATUS CHANGES [None]
